FAERS Safety Report 4996775-3 (Version None)
Quarter: 2006Q2

REPORT INFORMATION
  Report Type: 
  Country: None (occurrence: None)
  Receive Date: 20060509
  Receipt Date: 20060405
  Transmission Date: 20061013
  Serious: Yes (Hospitalization)
  Sender: FDA-Public Use
  Company Number: US-MERCK-0604USA00707

PATIENT
  Age: 73 Year
  Sex: Male
  Weight: 86 kg

DRUGS (7)
  1. VIOXX [Suspect]
     Indication: ARTHRITIS
     Route: 048
     Dates: start: 20000501, end: 20040901
  2. LIPITOR [Concomitant]
     Route: 065
  3. PRILOSEC [Concomitant]
     Route: 048
  4. CELEBREX [Concomitant]
     Route: 065
  5. OXYCONTIN [Concomitant]
     Route: 065
  6. METHOCARBAMOL [Concomitant]
     Route: 065
  7. ASPIRIN [Concomitant]
     Route: 065

REACTIONS (1)
  - MYOCARDIAL INFARCTION [None]
